FAERS Safety Report 16695719 (Version 2)
Quarter: 2019Q3

REPORT INFORMATION
  Report Type: Spontaneous
  Country: US (occurrence: US)
  Receive Date: 20190813
  Receipt Date: 20190821
  Transmission Date: 20191004
  Serious: Yes (Hospitalization, Other)
  Sender: FDA-Public Use
  Company Number: US-TEVA-2019-US-1090517

PATIENT
  Age: 65 Year
  Sex: Female

DRUGS (7)
  1. DAUNORUBICIN [Concomitant]
     Active Substance: DAUNORUBICIN
     Indication: ACUTE MYELOID LEUKAEMIA
     Dosage: RECEIVED THROUGH IV PIGGYBACK ON DAYS 1 TO 3; AS A PART OF RE-INDUCTION CHEMOTHERAPY
     Route: 041
  2. SORAFENIB [Concomitant]
     Active Substance: SORAFENIB
     Indication: ACUTE MYELOID LEUKAEMIA
     Dosage: RECEIVED ON DAYS 8 TO 21
     Route: 048
  3. MIDOSTAURIN [Suspect]
     Active Substance: MIDOSTAURIN
     Indication: ACUTE MYELOID LEUKAEMIA
     Dosage: ON DAY 8 TO 21
     Route: 048
  4. CYTARABINE. [Suspect]
     Active Substance: CYTARABINE
     Indication: ACUTE MYELOID LEUKAEMIA
     Dosage: IV PIGGYBACK ON DAYS 1 TO 7 AS A PART OF INDUCTION CHEMOTHERAPY
     Route: 041
  5. CLADRIBINE. [Concomitant]
     Active Substance: CLADRIBINE
     Indication: ACUTE MYELOID LEUKAEMIA
     Dosage: RECEIVED THROUGH IV PIGGYBACK ON DAYS 1 TO 5; AS A PART OF RE-INDUCTION CHEMOTHERAPY
     Route: 041
  6. IDARUBICIN [Suspect]
     Active Substance: IDARUBICIN
     Indication: ACUTE MYELOID LEUKAEMIA
     Dosage: IV PIGGYBACK ON DAYS 1 TO 3
     Route: 041
  7. DECITABINE. [Suspect]
     Active Substance: DECITABINE
     Indication: ACUTE MYELOID LEUKAEMIA
     Dosage: RECEIVED THREE CYCLES THROUGH IV PIGGYBACK ON DAYS 1 TO 3 WITH AN UNSPECIFIED CHEMOTHERAPY AND SO...
     Route: 041

REACTIONS (4)
  - Oliguria [Unknown]
  - Acute kidney injury [Unknown]
  - Pancytopenia [Unknown]
  - Febrile neutropenia [Unknown]
